FAERS Safety Report 7764413-2 (Version None)
Quarter: 2011Q3

REPORT INFORMATION
  Report Type: 
  Country: None (occurrence: None)
  Receive Date: 20110921
  Receipt Date: 20110914
  Transmission Date: 20111222
  Serious: Yes (Hospitalization)
  Sender: FDA-Public Use
  Company Number: US-B.I. PHARMACEUTICALS,INC./RIDGEFIELD-2011-BP-17116BP

PATIENT
  Age: 84 Year
  Sex: Female
  Weight: 60.7 kg

DRUGS (9)
  1. CARVEDILOL [Concomitant]
     Route: 048
  2. LEVOTHYROXINE SODIUM [Concomitant]
     Route: 048
  3. MECLIZINE [Concomitant]
     Route: 048
     Dates: end: 20110628
  4. FUROSEMIDE [Concomitant]
     Dosage: 20 MG
     Route: 048
  5. DIGOXIN [Concomitant]
     Dosage: 62.5 MCG
     Route: 048
  6. PRADAXA [Suspect]
     Indication: ATRIAL FIBRILLATION
     Dosage: 300 MG
     Dates: start: 20110615, end: 20110627
  7. RANITIDINE [Concomitant]
     Dosage: 150 MG
     Route: 048
     Dates: end: 20110628
  8. ASPIRIN [Concomitant]
     Dosage: 81 MG
     Route: 048
  9. VIT B12 [Concomitant]
     Dosage: 1000 MCG
     Route: 048

REACTIONS (4)
  - HAEMATOCHEZIA [None]
  - GASTROINTESTINAL HAEMORRHAGE [None]
  - ANAEMIA [None]
  - ASTHENIA [None]
